FAERS Safety Report 16838587 (Version 1)
Quarter: 2019Q3

REPORT INFORMATION
  Report Type: Spontaneous
  Country: US (occurrence: US)
  Receive Date: 20190920
  Receipt Date: 20190920
  Transmission Date: 20191005
  Serious: Yes (Disabling)
  Sender: FDA-Public Use
  Company Number: None

PATIENT
  Age: 38 Year
  Weight: 83.25 kg

DRUGS (4)
  1. STRESS DEFY [Concomitant]
  2. KRATOM [Suspect]
     Active Substance: HERBALS\MITRAGYNINE
     Indication: ANXIETY
     Route: 048
     Dates: start: 20181201, end: 20190920
  3. LECITHIN [Concomitant]
     Active Substance: LECITHIN
  4. MELATONIN [Concomitant]
     Active Substance: MELATONIN

REACTIONS (9)
  - Intentional overdose [None]
  - Product contamination physical [None]
  - Vomiting [None]
  - Drug diversion [None]
  - Irritability [None]
  - Nightmare [None]
  - Depression [None]
  - Hyperaesthesia [None]
  - Hyperhidrosis [None]

NARRATIVE: CASE EVENT DATE: 20190914
